FAERS Safety Report 4691164-3 (Version None)
Quarter: 2005Q2

REPORT INFORMATION
  Report Type: 
  Country: None (occurrence: None)
  Receive Date: 20050615
  Receipt Date: 20050613
  Transmission Date: 20051028
  Serious: Yes (Death, Hospitalization)
  Sender: FDA-Public Use
  Company Number: FR-ABBOTT-05P-056-0303032-00

PATIENT
  Age: 32 Month
  Sex: Male

DRUGS (4)
  1. VALPROATE SODIUM [Suspect]
     Indication: EPILEPSY
     Dates: start: 19780101
  2. PHENOBARBITAL [Concomitant]
     Indication: EPILEPSY
  3. NITRAZEPAM [Concomitant]
     Indication: EPILEPSY
  4. CLOBAZAM [Concomitant]
     Indication: EPILEPSY

REACTIONS (2)
  - HEPATITIS TOXIC [None]
  - STATUS EPILEPTICUS [None]
